FAERS Safety Report 21617165 (Version 2)
Quarter: 2022Q4

REPORT INFORMATION
  Report Type: Report from Study
  Country: US (occurrence: US)
  Receive Date: 20221118
  Receipt Date: 20221119
  Transmission Date: 20230113
  Serious: No
  Sender: FDA-Public Use
  Company Number: US-ABBVIE-4184450

PATIENT
  Age: 50 Year
  Sex: Female

DRUGS (1)
  1. HUMIRA [Suspect]
     Active Substance: ADALIMUMAB
     Indication: Hidradenitis
     Dosage: CF FORM STRENGTH: 40 MG
     Route: 058

REACTIONS (3)
  - Incorrect dose administered [Unknown]
  - Injection site erythema [Unknown]
  - Device issue [Unknown]

NARRATIVE: CASE EVENT DATE: 20221031
